FAERS Safety Report 12971571 (Version 2)
Quarter: 2016Q4

REPORT INFORMATION
  Report Type: Report from Study
  Country: US (occurrence: US)
  Receive Date: 20161123
  Receipt Date: 20161213
  Transmission Date: 20170207
  Serious: Yes (Hospitalization, Other)
  Sender: FDA-Public Use
  Company Number: US-ARIAD-2016US006620

PATIENT
  Sex: Female
  Weight: 111.11 kg

DRUGS (3)
  1. ICLUSIG [Suspect]
     Active Substance: PONATINIB
     Indication: MYELOID LEUKAEMIA
     Dosage: 45 MG, QD
     Route: 048
     Dates: start: 20160603
  2. ICLUSIG [Suspect]
     Active Substance: PONATINIB
     Dosage: 45 MG, QD
     Route: 048
  3. ICLUSIG [Suspect]
     Active Substance: PONATINIB
     Dosage: 45 MG, QD
     Route: 048

REACTIONS (9)
  - Communication disorder [Not Recovered/Not Resolved]
  - Stomatitis [Not Recovered/Not Resolved]
  - Clostridium difficile colitis [Not Recovered/Not Resolved]
  - Seizure [Not Recovered/Not Resolved]
  - White blood cell count increased [Not Recovered/Not Resolved]
  - Clostridium difficile infection [Not Recovered/Not Resolved]
  - Neutropenia [Not Recovered/Not Resolved]
  - Chemotherapy [Not Recovered/Not Resolved]
  - Neoplasm progression [Unknown]
